FAERS Safety Report 25548383 (Version 1)
Quarter: 2025Q3

REPORT INFORMATION
  Report Type: Spontaneous
  Country: US (occurrence: None)
  Receive Date: 20250711
  Receipt Date: 20250711
  Transmission Date: 20251021
  Serious: Yes (Other)
  Sender: FDA-CTU
  Company Number: None

PATIENT
  Age: 70 Year
  Sex: Female
  Weight: 50.4 kg

DRUGS (10)
  1. BELBUCA [Suspect]
     Active Substance: BUPRENORPHINE HYDROCHLORIDE
     Indication: Pain
     Dosage: 60 60 INSIDE OF CHEEK EVERY 12 HOURS ?
     Route: 050
     Dates: start: 20240415, end: 20250706
  2. Depekote [Concomitant]
  3. rovaststain [Concomitant]
  4. AMLODIPINE [Concomitant]
     Active Substance: AMLODIPINE BESYLATE
  5. Aread2 [Concomitant]
  6. vitamin c,d,e,a,b complex [Concomitant]
  7. VITAMIN D [Concomitant]
     Active Substance: VITAMIN D NOS
     Dosage: 60 60 INSIDE OF CHEEK EVERY 12 HOURS ?
     Route: 050
     Dates: start: 20240415, end: 20250706
  8. VITAMIN E [Concomitant]
     Active Substance: .ALPHA.-TOCOPHEROL
     Dosage: 60 60 INSIDE OF CHEEK EVERY 12 HOURS ?
     Route: 050
     Dates: start: 20240415, end: 20250706
  9. vitaminA [Concomitant]
     Dosage: 60 60 INSIDE OF CHEEK EVERY 12 HOURS ?
     Route: 050
     Dates: start: 20240415, end: 20250706
  10. VITAMIN B COMPLEX [Concomitant]
     Active Substance: CYANOCOBALAMIN\DEXPANTHENOL\NIACINAMIDE\PYRIDOXINE HYDROCHLORIDE\RIBOFLAVIN 5^-PHOSPHATE SODIUM\THIA
     Dosage: 60 60 INSIDE OF CHEEK EVERY 12 HOURS ?
     Route: 050
     Dates: start: 20240415, end: 20250706

REACTIONS (5)
  - Dental caries [None]
  - Hyperhidrosis [None]
  - Peripheral swelling [None]
  - Peripheral swelling [None]
  - Dysphonia [None]

NARRATIVE: CASE EVENT DATE: 20240415
